FAERS Safety Report 23722298 (Version 1)
Quarter: 2024Q2

REPORT INFORMATION
  Report Type: Spontaneous
  Country: US (occurrence: None)
  Receive Date: 20240408
  Receipt Date: 20240408
  Transmission Date: 20240715
  Serious: No
  Sender: FDA-Public Use
  Company Number: None

PATIENT
  Age: 37 Year
  Sex: Female
  Weight: 84.7 kg

DRUGS (2)
  1. REMICADE [Suspect]
     Active Substance: INFLIXIMAB
     Indication: Uveitis
     Dosage: OTHER FREQUENCY : EVERY 56 DAYS;?
     Route: 041
     Dates: start: 20240223, end: 20240308
  2. REMICADE [Suspect]
     Active Substance: INFLIXIMAB
     Indication: Vogt-Koyanagi-Harada disease

REACTIONS (5)
  - Chest pain [None]
  - Dizziness [None]
  - Flushing [None]
  - Dyspnoea [None]
  - Infusion related reaction [None]

NARRATIVE: CASE EVENT DATE: 20240308
